FAERS Safety Report 5376505-6 (Version None)
Quarter: 2007Q3

REPORT INFORMATION
  Report Type: 
  Country: None (occurrence: None)
  Receive Date: 20070702
  Receipt Date: 20070620
  Transmission Date: 20080115
  Serious: Yes (Hospitalization, Other)
  Sender: FDA-Public Use
  Company Number: BE-SHR-BE-2005-003311

PATIENT
  Age: 68 Year
  Sex: Female

DRUGS (8)
  1. CYCLOPHOSPHAMIDE [Suspect]
     Dosage: 250 MG/M2, CYCLES
     Route: 042
     Dates: start: 20040301, end: 20040721
  2. GLUCOPHAGE [Concomitant]
     Dosage: 850 MG, 2X/DAY
     Route: 048
     Dates: end: 20041101
  3. GLUCOPHAGE [Concomitant]
     Dosage: 850 MG, 2X/DAY
     Route: 048
     Dates: start: 20041128
  4. TENORMIN [Concomitant]
     Dosage: 50 MG, 1X/DAY
     Route: 048
  5. MINIPRESS [Concomitant]
     Dosage: 5 MG, 1.5 PER DAY
     Route: 048
  6. DAFALGAN [Concomitant]
     Dosage: 1800 MG, 3X/DAY
     Route: 048
  7. MIXTARD 30/70 ^NOVO NORDISK^ [Concomitant]
     Dosage: 24+38 U PER DAY
     Route: 058
  8. FLUDARABINE PHOSPHATE [Suspect]
     Dosage: 25 MG/M2, CYCLES
     Route: 042
     Dates: start: 20040301, end: 20040721

REACTIONS (17)
  - APRAXIA [None]
  - BALANCE DISORDER [None]
  - BRAIN OEDEMA [None]
  - CARDIAC DISORDER [None]
  - CARDIOMEGALY [None]
  - CEREBRAL DISORDER [None]
  - DIABETES MELLITUS INADEQUATE CONTROL [None]
  - DYSPRAXIA [None]
  - FALL [None]
  - HAEMATOMA [None]
  - MENTAL DISORDER [None]
  - METASTASES TO CENTRAL NERVOUS SYSTEM [None]
  - METASTASES TO HEART [None]
  - NEUROLOGICAL SYMPTOM [None]
  - PULMONARY CONGESTION [None]
  - RALES [None]
  - RHONCHI [None]
